FAERS Safety Report 6663066-4 (Version None)
Quarter: 2010Q1

REPORT INFORMATION
  Report Type: 
  Country: None (occurrence: None)
  Receive Date: 20100326
  Receipt Date: 20090707
  Transmission Date: 20100710
  Serious: Yes (Other)
  Sender: FDA-Public Use
  Company Number: 2009EN000205

PATIENT
  Age: 26 Year
  Sex: Male
  Weight: 147 kg

DRUGS (4)
  1. ONCASPAR [Suspect]
     Indication: ACUTE LYMPHOCYTIC LEUKAEMIA
     Dosage: 4500 IU; IM : 4500 IU; IV
     Route: 030
     Dates: start: 20090101, end: 20090101
  2. ONCASPAR [Suspect]
     Indication: ACUTE LYMPHOCYTIC LEUKAEMIA
     Dosage: 4500 IU; IM : 4500 IU; IV
     Route: 030
     Dates: start: 20090707, end: 20090707
  3. DEXAMETHASONE [Concomitant]
  4. ANZEMET [Concomitant]

REACTIONS (7)
  - CHEST DISCOMFORT [None]
  - CHEST PAIN [None]
  - HYPERSENSITIVITY [None]
  - NAUSEA [None]
  - PRURITUS [None]
  - TACHYCARDIA [None]
  - VOMITING [None]
